FAERS Safety Report 7664648-3 (Version None)
Quarter: 2011Q3

REPORT INFORMATION
  Report Type: 
  Country: None (occurrence: None)
  Receive Date: 20110806
  Receipt Date: 20110106
  Transmission Date: 20111222
  Serious: No
  Sender: FDA-Public Use
  Company Number: US-ABBOTT-11P-163-0695689-00

PATIENT
  Sex: Female
  Weight: 72.64 kg

DRUGS (1)
  1. NIASPAN [Suspect]
     Indication: HIGH DENSITY LIPOPROTEIN DECREASED
     Dosage: EVERY MORNING/TOOK ONLY 1 DOSE
     Route: 048

REACTIONS (6)
  - PAIN [None]
  - MYALGIA [None]
  - RASH MACULAR [None]
  - PRURITUS [None]
  - YELLOW SKIN [None]
  - FEELING ABNORMAL [None]
